FAERS Safety Report 9639828 (Version 1)
Quarter: 2013Q4

REPORT INFORMATION
  Report Type: Spontaneous
  Country: US (occurrence: None)
  Receive Date: 20131021
  Receipt Date: 20131021
  Transmission Date: 20140711
  Serious: Yes (Other)
  Sender: FDA-Public Use
  Company Number: None

PATIENT
  Age: 37 Year
  Sex: Female
  Weight: 62.14 kg

DRUGS (1)
  1. UCERIS [Suspect]
     Indication: HEADACHE
     Dosage: TAKEN BY MOUTH
     Dates: start: 20131005, end: 20131013

REACTIONS (4)
  - Headache [None]
  - Intracranial pressure increased [None]
  - Nasal oedema [None]
  - Rhinalgia [None]
